FAERS Safety Report 20238971 (Version 2)
Quarter: 2022Q1

REPORT INFORMATION
  Report Type: Spontaneous
  Country: US (occurrence: US)
  Receive Date: 20211228
  Receipt Date: 20220218
  Transmission Date: 20220424
  Serious: Yes (Death)
  Sender: FDA-Public Use
  Company Number: US-NOVARTISPH-NVSC2021US297537

PATIENT
  Sex: Female
  Weight: 40 kg

DRUGS (1)
  1. CLOFAZIMINE [Suspect]
     Active Substance: CLOFAZIMINE
     Indication: Mycobacterium abscessus infection
     Dosage: 50 MG, BID
     Route: 048
     Dates: start: 20210602

REACTIONS (4)
  - Respiratory failure [Fatal]
  - Chronic respiratory failure [Fatal]
  - Mycobacterial infection [Fatal]
  - Aspergillus infection [Fatal]
